FAERS Safety Report 18051768 (Version 3)
Quarter: 2020Q3

REPORT INFORMATION
  Report Type: Report from Study
  Country: DE (occurrence: DE)
  Receive Date: 20200721
  Receipt Date: 20200821
  Transmission Date: 20201103
  Serious: Yes (Hospitalization, Other)
  Sender: FDA-Public Use
  Company Number: NVSC2020DE204649

PATIENT
  Sex: Male
  Weight: 70 kg

DRUGS (1)
  1. MAYZENT [Suspect]
     Active Substance: SIPONIMOD
     Indication: SECONDARY PROGRESSIVE MULTIPLE SCLEROSIS
     Dosage: 2 MG
     Route: 048
     Dates: start: 20200605

REACTIONS (3)
  - Paraparesis [Recovered/Resolved]
  - Infection [Recovered/Resolved]
  - Renal aneurysm [Recovered/Resolved]

NARRATIVE: CASE EVENT DATE: 20200630
